FAERS Safety Report 23551749 (Version 1)
Quarter: 2024Q1

REPORT INFORMATION
  Report Type: Spontaneous
  Country: ES (occurrence: ES)
  Receive Date: 20240222
  Receipt Date: 20240222
  Transmission Date: 20240410
  Serious: Yes (Hospitalization)
  Sender: FDA-Public Use
  Company Number: None

PATIENT
  Age: 71 Year
  Sex: Female

DRUGS (1)
  1. ATORVASTATIN [Suspect]
     Active Substance: ATORVASTATIN
     Indication: Dyslipidaemia
     Dosage: 40 MG EVERY DAY, ATORVASTATINA (7400A)
     Route: 048
     Dates: start: 20231003, end: 20231214

REACTIONS (2)
  - Hepatitis cholestatic [Recovered/Resolved]
  - Cholestatic pruritus [Recovered/Resolved]

NARRATIVE: CASE EVENT DATE: 20231012
